FAERS Safety Report 24611297 (Version 2)
Quarter: 2024Q4

REPORT INFORMATION
  Report Type: Spontaneous
  Country: EG (occurrence: EG)
  Receive Date: 20241113
  Receipt Date: 20241121
  Transmission Date: 20250115
  Serious: Yes (Other)
  Sender: NOVO NORDISK
  Company Number: EG-NOVOPROD-1311495

PATIENT
  Age: 222 Month
  Sex: Female
  Weight: 57 kg

DRUGS (6)
  1. ALPHINTERN [Concomitant]
     Indication: Swelling
     Dosage: 1TAB MORNING AND 1 TAB NIGHT (DAILY)
     Route: 048
  2. NOVORAPID [Suspect]
     Active Substance: INSULIN ASPART
     Indication: Type 1 diabetes mellitus
     Dosage: STARTED BETWEEN 2012-2013, 12U-15U-10 U
     Route: 058
  3. NOVORAPID [Suspect]
     Active Substance: INSULIN ASPART
     Dosage: DOSES WAS INCREASED FROM 10 IU WITH BREAKFAST -12 IU WITH LUNCH -10 IU WITH DINNER TO 10 IU WITH BRE
     Route: 058
  4. DAPAGLIFLOZIN [Concomitant]
     Active Substance: DAPAGLIFLOZIN
     Indication: Type 1 diabetes mellitus
     Dosage: 1 TAB DAILY
     Route: 048
  5. FLAGYL [Concomitant]
     Active Substance: METRONIDAZOLE\METRONIDAZOLE HYDROCHLORIDE
     Indication: Septic rash
     Dosage: 1TAB MORNING AND 1 TAB NIGHT (DAILY)
     Route: 048
  6. NOVORAPID [Suspect]
     Active Substance: INSULIN ASPART
     Indication: Type 1 diabetes mellitus
     Dosage: UNK

REACTIONS (10)
  - Abscess [Recovered/Resolved]
  - Postoperative wound complication [Recovered/Resolved]
  - Magnesium deficiency [Unknown]
  - Injection site swelling [Not Recovered/Not Resolved]
  - Injection site mass [Not Recovered/Not Resolved]
  - Blood glucose increased [Unknown]
  - Wrong technique in product usage process [Unknown]
  - Incorrect route of product administration [Unknown]
  - Lack of injection site rotation [Unknown]
  - Drug ineffective [Unknown]

NARRATIVE: CASE EVENT DATE: 20240701
